FAERS Safety Report 20915119 (Version 1)
Quarter: 2022Q2

REPORT INFORMATION
  Report Type: Spontaneous
  Country: US (occurrence: US)
  Receive Date: 20220604
  Receipt Date: 20220604
  Transmission Date: 20220720
  Serious: No
  Sender: FDA-Public Use
  Company Number: US-SA-SAC20220526000523

PATIENT
  Age: 58 Year
  Sex: Female

DRUGS (1)
  1. CEREZYME [Suspect]
     Active Substance: IMIGLUCERASE
     Dosage: 3200 MG, QOW
     Route: 042

REACTIONS (1)
  - Intentional dose omission [Unknown]

NARRATIVE: CASE EVENT DATE: 20220501
